FAERS Safety Report 8434777-5 (Version None)
Quarter: 2012Q2

REPORT INFORMATION
  Report Type: 
  Country: None (occurrence: None)
  Receive Date: 20120611
  Receipt Date: 20120611
  Transmission Date: 20120825
  Serious: Yes (Disabling, Other)
  Sender: FDA-Public Use
  Company Number: None

PATIENT
  Sex: Male
  Weight: 88.4514 kg

DRUGS (1)
  1. ABILIFY [Suspect]
     Dosage: 15 MG ONCE A DAY PO
     Route: 048
     Dates: start: 20100610, end: 20120104

REACTIONS (2)
  - ERECTILE DYSFUNCTION [None]
  - ANORGASMIA [None]
